FAERS Safety Report 25423974 (Version 2)
Quarter: 2025Q2

REPORT INFORMATION
  Report Type: Spontaneous
  Country: NL (occurrence: NL)
  Receive Date: 20250611
  Receipt Date: 20250618
  Transmission Date: 20250717
  Serious: Yes (Hospitalization, Other)
  Sender: AMGEN
  Company Number: NL-AMGEN-NLDSP2025111976

PATIENT

DRUGS (13)
  1. TALIMOGENE LAHERPAREPVEC [Suspect]
     Active Substance: TALIMOGENE LAHERPAREPVEC
     Indication: Skin lesion
     Route: 065
  2. TALIMOGENE LAHERPAREPVEC [Suspect]
     Active Substance: TALIMOGENE LAHERPAREPVEC
     Route: 065
  3. ALENDRONIC ACID [Concomitant]
     Active Substance: ALENDRONIC ACID
     Dosage: 70 MILLIGRAM, QWK (ONLY 1 PIECE ON MONDAYS, KEEP TO FIXED TIMES IN CONNECTION WITH IA CALC)
     Route: 048
  4. ACETAMINOPHEN [Concomitant]
     Active Substance: ACETAMINOPHEN
     Route: 048
  5. OMEPRAZOLE [Concomitant]
     Active Substance: OMEPRAZOLE
     Dosage: 20 MILLIGRAM, QD (1 X PER DAY 1 PIECE)
     Route: 048
  6. METOPROLOL [Concomitant]
     Active Substance: METOPROLOL
     Dosage: 25 MILLIGRAM, QD (1 X PER DAY 1 PIECE)
     Route: 048
  7. LOSARTAN [Concomitant]
     Active Substance: LOSARTAN
     Dosage: 50 GRAM, QD ( 1 X PER DAY 1 PIECE - STOP DATE: UNTIL FURTHER NOTICE STOPPED )
     Route: 048
  8. LIPITOR [Concomitant]
     Active Substance: ATORVASTATIN CALCIUM
     Dosage: 20 MILLIGRAM, QD (1 X PER DAY 1 PIECE)
     Route: 048
  9. LEVODOPA [Concomitant]
     Active Substance: LEVODOPA
     Dosage: UNK UNK, TID (100/25MG (ORAL), 3 X PER DAY 1 PIECE HALF AN HOUR BEFORE EATING.)
  10. COTRIMOXAZOLE [Concomitant]
     Active Substance: SULFAMETHOXAZOLE\TRIMETHOPRIM
     Dosage: 480 MILLIGRAM, QD  ( 1 X PER DAY 1 PIECE - STOP DATE: 2-7-2025)
     Route: 048
  11. CALCIUM CARBONATE\CHOLECALCIFEROL [Concomitant]
     Active Substance: CALCIUM CARBONATE\CHOLECALCIFEROL
     Dosage: UNK UNK, QD (500MG/800IE, 1 X PER DAY 1 PIECE KEEP TO FIXED TIMES)
     Route: 048
  12. CARBASPIRIN CALCIUM [Concomitant]
     Active Substance: CARBASPIRIN CALCIUM
     Dosage: 100 MILLIGRAM, QD (1 X PER DAY 1 PIECE)
     Route: 048
  13. PREDNISOLONE [Concomitant]
     Active Substance: PREDNISOLONE
     Route: 048
     Dates: start: 20250607

REACTIONS (1)
  - Colitis [Recovering/Resolving]
